FAERS Safety Report 4536930-X (Version None)
Quarter: 2004Q4

REPORT INFORMATION
  Report Type: 
  Country: None (occurrence: None)
  Receive Date: 20041220
  Receipt Date: 20041210
  Transmission Date: 20050328
  Serious: Yes (Hospitalization)
  Sender: FDA-Public Use
  Company Number: KII-2004-0014244

PATIENT
  Age: 76 Year
  Sex: Male
  Weight: 70 kg

DRUGS (21)
  1. OXYCONTIN [Suspect]
     Dosage: ORAL
     Route: 048
  2. SSRI() [Suspect]
     Dosage: ORAL
     Route: 048
  3. CALCIUM CHANNEL BLOCKERS() [Suspect]
     Dosage: ORAL
     Route: 048
  4. LONG ACTING NITRATE () [Suspect]
     Dosage: ORAL
     Route: 048
  5. BUSPIRONE HCL [Suspect]
     Dosage: ORAL
     Route: 048
  6. BENZODIAZEPINE DERIVATIVES() [Suspect]
     Dosage: ORAL
     Route: 048
  7. PROTON PUMP INHIBITOR () [Suspect]
     Dosage: ORAL
     Route: 048
  8. BETA BLOCKING AGENTS () [Suspect]
     Dosage: ORAL
     Route: 048
  9. ANTIPSYCHOTICS () [Suspect]
     Dosage: ORAL
     Route: 048
  10. DIOVAN COMP (VALSARTAN, HYDROCHLOROTHIAZIDE) [Suspect]
     Dosage: ORAL
     Route: 048
  11. POTASSIUM (POTASSIUM) [Suspect]
     Dosage: ORAL
     Route: 048
  12. FUROSEMIDE [Suspect]
     Dosage: ORAL
     Route: 048
  13. GLYBURIDE [Suspect]
     Dosage: ORAL
     Route: 048
  14. GLUCOPHAGE [Concomitant]
  15. GLUCOTROL [Concomitant]
  16. ANTIINFLAMMATORY/ANTIRHEUMATIC PRODUCTS [Concomitant]
  17. PROPOXYPHENE [Concomitant]
  18. ACE INHIBITOR [Concomitant]
  19. ACETYLSALICYLIC ACID [Concomitant]
  20. GASTROINTESTINAL PREPARATIONS [Concomitant]
  21. ANTIHYPERTENSIVES [Concomitant]

REACTIONS (9)
  - ACCIDENTAL EXPOSURE [None]
  - BLOOD GLUCOSE INCREASED [None]
  - CONFUSIONAL STATE [None]
  - ELECTROCARDIOGRAM PR PROLONGATION [None]
  - ELECTROCARDIOGRAM QT PROLONGED [None]
  - HEART RATE DECREASED [None]
  - HYPOTENSION [None]
  - MEDICATION ERROR [None]
  - SOMNOLENCE [None]
